FAERS Safety Report 5096428-X (Version None)
Quarter: 2006Q3

REPORT INFORMATION
  Report Type: 
  Country: None (occurrence: None)
  Receive Date: 20060905
  Receipt Date: 20060824
  Transmission Date: 20061208
  Serious: Yes (Hospitalization, Other)
  Sender: FDA-Public Use
  Company Number: US-BRISTOL-MYERS SQUIBB COMPANY-13487061

PATIENT
  Age: 59 Year
  Sex: Male

DRUGS (13)
  1. CARBOPLATIN [Suspect]
     Indication: NON-SMALL CELL LUNG CANCER
     Route: 042
     Dates: start: 20060330, end: 20060420
  2. PACLITAXEL [Suspect]
     Indication: NON-SMALL CELL LUNG CANCER
     Route: 042
     Dates: start: 20060330, end: 20060420
  3. BLINDED: SORAFENIB [Suspect]
     Indication: NON-SMALL CELL LUNG CANCER
     Route: 048
     Dates: start: 20060331, end: 20060426
  4. BLINDED: PLACEBO [Suspect]
     Indication: NON-SMALL CELL LUNG CANCER
     Route: 048
     Dates: start: 20060331, end: 20060426
  5. ASCORBIC ACID [Concomitant]
  6. FERROUS SULFATE TAB [Concomitant]
  7. MULTI-VITAMIN [Concomitant]
     Indication: NUTRITIONAL SUPPORT
  8. PREVACID [Concomitant]
     Dates: start: 20060330
  9. MUCINEX [Concomitant]
     Route: 048
     Dates: start: 20060327
  10. COMPAZINE [Concomitant]
     Route: 048
     Dates: start: 20060327
  11. ZOFRAN [Concomitant]
     Indication: PREMEDICATION
     Dates: start: 20060327
  12. CALCIUM GLUCONATE [Concomitant]
     Route: 048
  13. RED YEAST RICE [Concomitant]

REACTIONS (3)
  - ABDOMINAL PAIN [None]
  - DEEP VEIN THROMBOSIS [None]
  - PNEUMONIA [None]
